FAERS Safety Report 5338051-5 (Version None)
Quarter: 2007Q2

REPORT INFORMATION
  Report Type: 
  Country: None (occurrence: None)
  Receive Date: 20070530
  Receipt Date: 20070521
  Transmission Date: 20071010
  Serious: Yes (Hospitalization, Other)
  Sender: FDA-Public Use
  Company Number: PHEH2007US04084

PATIENT
  Sex: Male
  Weight: 104.31 kg

DRUGS (1)
  1. ZELNORM [Suspect]
     Indication: GASTROINTESTINAL MOTILITY DISORDER
     Dosage: 6 MG, BID
     Dates: start: 20050101, end: 20070331

REACTIONS (7)
  - ABDOMINAL DISTENSION [None]
  - CONSTIPATION [None]
  - DRUG INEFFECTIVE [None]
  - DYSPEPSIA [None]
  - INFECTION [None]
  - NAUSEA [None]
  - PYLOROPLASTY [None]
